FAERS Safety Report 9050292 (Version 1)
Quarter: 2013Q1

REPORT INFORMATION
  Report Type: Spontaneous
  Country: FR (occurrence: FR)
  Receive Date: 20130205
  Receipt Date: 20130205
  Transmission Date: 20140127
  Serious: Yes (Hospitalization)
  Sender: FDA-Public Use
  Company Number: FR-009507513-1302FRA001417

PATIENT
  Age: 87 None
  Sex: Male

DRUGS (10)
  1. CHIBRO-PROSCAR [Suspect]
     Indication: PRODUCT USED FOR UNKNOWN INDICATION
     Dosage: 5 MG, QD
     Route: 048
     Dates: end: 20070925
  2. CHIBRO-PROSCAR [Suspect]
     Dosage: UNK
     Route: 048
     Dates: start: 20071008
  3. PREVISCAN [Suspect]
     Indication: PRODUCT USED FOR UNKNOWN INDICATION
     Dosage: 10 MG, BID
     Route: 048
     Dates: end: 20070925
  4. PREVISCAN [Suspect]
     Dosage: UNK
     Route: 048
     Dates: start: 20071002
  5. APROVEL [Suspect]
     Indication: HYPERTENSION
     Dosage: 150 MG, QD
     Route: 048
     Dates: end: 20070925
  6. APROVEL [Suspect]
     Dosage: UNK
     Route: 048
     Dates: start: 20071008
  7. HEMIGOXINE [Concomitant]
     Indication: PRODUCT USED FOR UNKNOWN INDICATION
  8. SINGULAIR [Concomitant]
     Indication: PRODUCT USED FOR UNKNOWN INDICATION
  9. PNEUMOREL [Concomitant]
     Indication: PRODUCT USED FOR UNKNOWN INDICATION
  10. NOCTRAN [Concomitant]
     Indication: PRODUCT USED FOR UNKNOWN INDICATION

REACTIONS (1)
  - Rectal haemorrhage [Recovered/Resolved]
